FAERS Safety Report 18344253 (Version 1)
Quarter: 2020Q4

REPORT INFORMATION
  Report Type: Spontaneous
  Country: US (occurrence: US)
  Receive Date: 20201002
  Receipt Date: 20201002
  Transmission Date: 20210114
  Serious: No
  Sender: FDA-Public Use
  Company Number: None

PATIENT
  Age: 37 Year
  Sex: Male
  Weight: 78.47 kg

DRUGS (1)
  1. STELARA [Suspect]
     Active Substance: USTEKINUMAB
     Indication: PSORIASIS
     Dosage: ON DAY 0 AND DAY 28 AS DIRECTED?
     Route: 058
     Dates: start: 201901

REACTIONS (3)
  - Atrial fibrillation [None]
  - Gastrointestinal disorder [None]
  - Cardiac failure [None]
